FAERS Safety Report 24434267 (Version 2)
Quarter: 2025Q3

REPORT INFORMATION
  Report Type: Spontaneous
  Country: ID (occurrence: ID)
  Receive Date: 20241014
  Receipt Date: 20250803
  Transmission Date: 20251020
  Serious: Yes (Disabling, Other)
  Sender: ALEXION PHARMACEUTICALS
  Company Number: ID-AstraZeneca-2024-258064

PATIENT
  Weight: 37 kg

DRUGS (2)
  1. TAGRISSO [Suspect]
     Active Substance: OSIMERTINIB
  2. TRAMADA [Concomitant]

REACTIONS (5)
  - Leukopenia [Unknown]
  - Deafness unilateral [Unknown]
  - Underweight [Unknown]
  - Tinnitus [Unknown]
  - Paraesthesia [Unknown]
